FAERS Safety Report 8553386-0 (Version None)
Quarter: 2012Q3

REPORT INFORMATION
  Report Type: 
  Country: None (occurrence: None)
  Receive Date: 20120731
  Receipt Date: 20120720
  Transmission Date: 20120928
  Serious: Yes (Hospitalization)
  Sender: FDA-Public Use
  Company Number: US-ELI_LILLY_AND_COMPANY-US201207007093

PATIENT
  Sex: Female

DRUGS (20)
  1. FERROUS SULFATE TAB [Concomitant]
     Dosage: UNK, UNKNOWN
  2. MAGNESIUM OXIDE [Concomitant]
     Dosage: UNK, UNKNOWN
  3. METOPROLOL TARTRATE [Concomitant]
     Dosage: UNK, UNKNOWN
  4. ZOLOFT [Concomitant]
     Dosage: UNK, UNKNOWN
  5. ALBUTEROL [Concomitant]
     Dosage: UNK, UNKNOWN
  6. MUCINEX [Concomitant]
     Dosage: UNK, UNKNOWN
  7. CALCIUM WITH VITAMIN D [Concomitant]
     Dosage: UNK, UNKNOWN
  8. ACIDOPHILUS [Concomitant]
     Dosage: UNK, UNKNOWN
  9. MEGACE [Concomitant]
     Dosage: UNK, UNKNOWN
  10. FORTEO [Suspect]
     Indication: OSTEOPOROSIS
     Dosage: 20 U, QD
     Dates: start: 20120401
  11. AMIODARONE HCL [Concomitant]
     Dosage: UNK, UNKNOWN
  12. ASPIRIN [Concomitant]
     Dosage: UNK, UNKNOWN
  13. VYTORIN [Concomitant]
     Dosage: UNK, UNKNOWN
  14. ASCORBIC ACID [Concomitant]
     Dosage: UNK, UNKNOWN
  15. NYSTATIN [Concomitant]
     Dosage: UNK, UNKNOWN
  16. TRAZODONE HYDROCHLORIDE [Concomitant]
  17. XANAX [Concomitant]
     Dosage: UNK, UNKNOWN
  18. CHOLESTYRAMINE [Concomitant]
     Dosage: UNK, UNKNOWN
  19. PROTONIX [Concomitant]
     Dosage: UNK, UNKNOWN
  20. NIASPAN [Concomitant]
     Dosage: UNK, UNKNOWN

REACTIONS (5)
  - PNEUMONIA [None]
  - HAEMOPTYSIS [None]
  - URINARY TRACT INFECTION [None]
  - CLOSTRIDIAL INFECTION [None]
  - DEHYDRATION [None]
